FAERS Safety Report 9448833 (Version 1)
Quarter: 2013Q3

REPORT INFORMATION
  Report Type: Spontaneous
  Country: DE (occurrence: None)
  Receive Date: 20130806
  Receipt Date: 20130806
  Transmission Date: 20140515
  Serious: Yes (Other)
  Sender: FDA-Public Use
  Company Number: FK201302817

PATIENT
  Age: 61 Year
  Sex: Female

DRUGS (4)
  1. METHOTREXATE (MANUFACTURER UNKNOWN) (METHOTREXATE) (METHOTREXATE) [Suspect]
     Indication: DIFFUSE LARGE B-CELL LYMPHOMA
  2. CYCLOPHOSPHAMIDE [Suspect]
  3. VINCRISTINE [Suspect]
     Indication: DIFFUSE LARGE B-CELL LYMPHOMA
  4. ADRIAMYCIN [Suspect]
     Indication: DIFFUSE LARGE B-CELL LYMPHOMA

REACTIONS (2)
  - Palmar-plantar erythrodysaesthesia syndrome [None]
  - Skin toxicity [None]
